FAERS Safety Report 14248768 (Version 1)
Quarter: 2017Q4

REPORT INFORMATION
  Report Type: Spontaneous
  Country: GB (occurrence: GB)
  Receive Date: 20171204
  Receipt Date: 20171204
  Transmission Date: 20180321
  Serious: Yes (Hospitalization, Other)
  Sender: FDA-Public Use
  Company Number: GB-PFIZER INC-2017517236

PATIENT
  Age: 66 Year
  Sex: Female

DRUGS (35)
  1. EDOXABAN [Concomitant]
     Active Substance: EDOXABAN TOSYLATE
     Dosage: UNK
     Dates: start: 20170724, end: 20171018
  2. SERETIDE [Concomitant]
     Active Substance: FLUTICASONE PROPIONATE\SALMETEROL XINAFOATE
     Dosage: UNK
     Dates: start: 20170407, end: 20171018
  3. SEREVENT DISKUS [Concomitant]
     Active Substance: SALMETEROL XINAFOATE
     Dosage: SALMETEROL XINAFOATE MICRONISED
  4. BETAMETHASONE VALERATE. [Concomitant]
     Active Substance: BETAMETHASONE VALERATE
     Dosage: UNK
  5. AMOXICILLIN. [Concomitant]
     Active Substance: AMOXICILLIN
     Dosage: UNK
  6. SODIUM CHLORIDE. [Concomitant]
     Active Substance: SODIUM CHLORIDE
     Dosage: UNK
  7. SALBUTAMOL, (SALBUTAMOL BASE) [Concomitant]
     Dosage: UNK
  8. ACLIDINIUM BROMIDE. [Concomitant]
     Active Substance: ACLIDINIUM BROMIDE
     Dosage: UNK
     Dates: start: 20170407, end: 20171018
  9. PROPRANOLOL [Concomitant]
     Active Substance: PROPRANOLOL HYDROCHLORIDE
     Dosage: UNK
     Dates: start: 20170904, end: 20171018
  10. SALBUTAMOL [Concomitant]
     Active Substance: ALBUTEROL
     Dosage: UNK
  11. CLAVULANATE POTASSIUM [Concomitant]
     Active Substance: CLAVULANATE POTASSIUM
     Dosage: UNK
  12. AMINOPHYLLINE HYDRATE [Concomitant]
     Active Substance: AMINOPHYLLINE
     Dosage: UNK
  13. BISOPROLOL [Concomitant]
     Active Substance: BISOPROLOL
     Dosage: UNK
     Dates: start: 20170407, end: 20171018
  14. CO-AMOXICLAV [Concomitant]
     Active Substance: AMOXICILLIN\CLAVULANIC ACID
     Dosage: UNK
     Dates: start: 20170407, end: 20171018
  15. CARBIMAZOLE [Concomitant]
     Active Substance: CARBIMAZOLE
     Dosage: UNK
     Dates: start: 20170904, end: 20171018
  16. AMIODARONE HCL [Suspect]
     Active Substance: AMIODARONE HYDROCHLORIDE
     Dosage: UNK
     Route: 065
     Dates: start: 20171101
  17. BENZALKONIUM CHLORIDE. [Concomitant]
     Active Substance: BENZALKONIUM CHLORIDE
     Dosage: UNK
  18. CANDESARTAN. [Concomitant]
     Active Substance: CANDESARTAN
     Dosage: UNK
     Dates: start: 20170407, end: 20171018
  19. LANSOPRAZOLE. [Concomitant]
     Active Substance: LANSOPRAZOLE
     Dosage: UNK
     Dates: start: 20170407, end: 20171018
  20. SALBUTAMOL SULFATE, SALBUTAMOL SULPHATE MICRONISED [Concomitant]
     Dosage: UNK
  21. SALBUTAMOL SULFATE [Concomitant]
     Active Substance: ALBUTEROL SULFATE
     Dosage: UNK
  22. FUROSEMIDE. [Concomitant]
     Active Substance: FUROSEMIDE
     Dosage: UNK
     Dates: start: 20170407, end: 20171018
  23. SERETIDE / ALLEN + HANBURYS LTD [Concomitant]
     Dosage: FLUTICASONE PROPIONATE MICRONISED
  24. BETNOVATE [Concomitant]
     Active Substance: BETAMETHASONE
     Dosage: UNK
     Dates: start: 20170407, end: 20171018
  25. EMULSIDERM [Concomitant]
     Dosage: UNK
     Dates: start: 20170407, end: 20171010
  26. LIQUID PARAFFIN [Concomitant]
     Dosage: UNK
  27. PREDNISOLONE. [Concomitant]
     Active Substance: PREDNISOLONE
     Dosage: UNK
     Dates: start: 20170407
  28. VENTOLIN [Concomitant]
     Active Substance: ALBUTEROL SULFATE
     Dosage: UNK
     Dates: start: 20170407, end: 20171018
  29. DIGOXIN. [Concomitant]
     Active Substance: DIGOXIN
     Dosage: UNK
     Dates: start: 20170904, end: 20171018
  30. TRAVOPROST. [Concomitant]
     Active Substance: TRAVOPROST
     Dosage: UNK
     Dates: start: 20170407, end: 20171018
  31. STERI-NEB SALINE [Concomitant]
     Dosage: UNK
     Dates: start: 20170407, end: 20171018
  32. SPIRONOLACTONE. [Concomitant]
     Active Substance: SPIRONOLACTONE
     Dosage: UNK
  33. PHYLLOCONTIN [Concomitant]
     Active Substance: AMINOPHYLLINE
     Dosage: UNK
     Dates: start: 20170407, end: 20171018
  34. CLIOQUINOL [Concomitant]
     Active Substance: CLIOQUINOL
     Dosage: UNK
  35. ISOPROPYL MYRISTATE [Concomitant]
     Active Substance: ISOPROPYL MYRISTATE
     Dosage: UNK

REACTIONS (2)
  - Phlebitis [Unknown]
  - Eye disorder [Not Recovered/Not Resolved]
